FAERS Safety Report 6656957-1 (Version None)
Quarter: 2010Q1

REPORT INFORMATION
  Report Type: 
  Country: None (occurrence: None)
  Receive Date: 20100330
  Receipt Date: 20100322
  Transmission Date: 20100710
  Serious: Yes (Hospitalization)
  Sender: FDA-Public Use
  Company Number: US-BIOGENIDEC-2010BI006057

PATIENT
  Age: 39 Year
  Sex: Female
  Weight: 58 kg

DRUGS (2)
  1. TYSABRI [Suspect]
     Indication: MULTIPLE SCLEROSIS
     Route: 042
     Dates: start: 20071113
  2. EFFEXOR [Concomitant]

REACTIONS (4)
  - ACCIDENTAL OVERDOSE [None]
  - CONTUSION [None]
  - FALL [None]
  - MULTIPLE SCLEROSIS RELAPSE [None]
